FAERS Safety Report 15554772 (Version 1)
Quarter: 2018Q4

REPORT INFORMATION
  Report Type: Other
  Country: GB (occurrence: GB)
  Receive Date: 20181026
  Receipt Date: 20181026
  Transmission Date: 20190205
  Serious: Yes (Death)
  Sender: FDA-Public Use
  Company Number: GB-CELLTRION INC.-2018GB023358

PATIENT

DRUGS (8)
  1. PREDNISOLONE. [Suspect]
     Active Substance: PREDNISOLONE
     Indication: INFLAMMATORY BOWEL DISEASE
     Dosage: 5-40MG
     Route: 048
     Dates: start: 2008, end: 2018
  2. CICLOSPORIN [Suspect]
     Active Substance: CYCLOSPORINE
     Indication: INFLAMMATORY BOWEL DISEASE
     Dosage: 100 MG, UNK
     Route: 048
     Dates: start: 200810, end: 200904
  3. AZATHIOPRINE. [Suspect]
     Active Substance: AZATHIOPRINE
     Indication: INFLAMMATORY BOWEL DISEASE
     Dosage: 50 MG, UNK
     Route: 048
     Dates: start: 201404, end: 201408
  4. INFLIXIMAB PFIZER (UNKNOWN) [Suspect]
     Active Substance: INFLIXIMAB
     Indication: INFLAMMATORY BOWEL DISEASE
     Dosage: UNK
     Route: 042
     Dates: start: 200703, end: 200710
  5. METHOTREXATE SODIUM. [Suspect]
     Active Substance: METHOTREXATE SODIUM
     Indication: INFLAMMATORY BOWEL DISEASE
     Dosage: 25 MG, UNK
     Route: 048
     Dates: start: 200910, end: 201010
  6. VEDOLIZUMAB [Suspect]
     Active Substance: VEDOLIZUMAB
     Indication: INFLAMMATORY BOWEL DISEASE
     Dosage: 300 MG, UNK
     Route: 042
     Dates: start: 201604, end: 201807
  7. ADALIMUMAB [Suspect]
     Active Substance: ADALIMUMAB
     Indication: INFLAMMATORY BOWEL DISEASE
     Dosage: 40 MG, UNK
     Dates: start: 200904, end: 200910
  8. MERCAPTOPURINE ANHYDROUS [Suspect]
     Active Substance: MERCAPTOPURINE
     Indication: INFLAMMATORY BOWEL DISEASE
     Dosage: 50 MG, UNK
     Route: 048
     Dates: start: 201306, end: 201404

REACTIONS (1)
  - Rectal cancer metastatic [Fatal]
